FAERS Safety Report 21029080 (Version 1)
Quarter: 2022Q2

REPORT INFORMATION
  Report Type: Report from Study
  Country: US (occurrence: US)
  Receive Date: 20220630
  Receipt Date: 20220630
  Transmission Date: 20220720
  Serious: Yes (Hospitalization, Other)
  Sender: FDA-Public Use
  Company Number: US-TAKEDA-US202032186

PATIENT
  Sex: Female

DRUGS (1)
  1. HUMAN IMMUNOGLOBULIN G [Suspect]
     Active Substance: HUMAN IMMUNOGLOBULIN G
     Indication: Primary immunodeficiency syndrome
     Dosage: UNK
     Route: 042

REACTIONS (6)
  - Corneal dystrophy [Unknown]
  - Eye ulcer [Unknown]
  - Myalgia [Unknown]
  - Cardiac disorder [Unknown]
  - Lung disorder [Unknown]
  - Lymphadenopathy [Unknown]
